FAERS Safety Report 8609453-6 (Version None)
Quarter: 2012Q3

REPORT INFORMATION
  Report Type: 
  Country: None (occurrence: None)
  Receive Date: 20120821
  Receipt Date: 20120817
  Transmission Date: 20120928
  Serious: No
  Sender: FDA-Public Use
  Company Number: US-TEVA-354590USA

PATIENT
  Sex: Male

DRUGS (2)
  1. PAROXETINE [Concomitant]
     Indication: DEPRESSION
  2. PROAIR HFA [Suspect]
     Indication: ASTHMA

REACTIONS (1)
  - BLOOD ALCOHOL INCREASED [None]
